FAERS Safety Report 11214606 (Version 10)
Quarter: 2017Q2

REPORT INFORMATION
  Report Type: Report from Study
  Country: CA (occurrence: CA)
  Receive Date: 20150624
  Receipt Date: 20170623
  Transmission Date: 20170829
  Serious: Yes (Hospitalization, Other)
  Sender: FDA-Public Use
  Company Number: PHHY2012CA025187

PATIENT
  Age: 50 Year
  Sex: Male

DRUGS (16)
  1. EXJADE [Suspect]
     Active Substance: DEFERASIROX
     Dosage: 2250 MG, QD
     Route: 048
     Dates: start: 201504
  2. ANDROGEL [Concomitant]
     Active Substance: TESTOSTERONE
     Indication: PRODUCT USED FOR UNKNOWN INDICATION
     Route: 065
  3. EXJADE [Suspect]
     Active Substance: DEFERASIROX
     Dosage: 2000 MG, QD
     Route: 048
  4. EXJADE [Suspect]
     Active Substance: DEFERASIROX
     Dosage: 500 MG, QD
     Route: 048
  5. APIXABAN [Concomitant]
     Active Substance: APIXABAN
     Indication: PRODUCT USED FOR UNKNOWN INDICATION
     Dosage: BID
     Route: 065
  6. MAGNESIUM [Concomitant]
     Active Substance: MAGNESIUM
     Indication: PRODUCT USED FOR UNKNOWN INDICATION
     Route: 065
  7. VITAMIN D [Concomitant]
     Active Substance: CHOLECALCIFEROL
     Indication: PRODUCT USED FOR UNKNOWN INDICATION
     Route: 065
  8. EXJADE [Suspect]
     Active Substance: DEFERASIROX
     Dosage: 1000 MG, QD
     Route: 048
  9. EXJADE [Suspect]
     Active Substance: DEFERASIROX
     Dosage: 2000 MG, QD
     Route: 048
  10. ENBREL [Concomitant]
     Active Substance: ETANERCEPT
     Indication: PRODUCT USED FOR UNKNOWN INDICATION
     Route: 065
  11. CALCIUM [Concomitant]
     Active Substance: CALCIUM
     Indication: PRODUCT USED FOR UNKNOWN INDICATION
     Route: 065
  12. EXJADE [Suspect]
     Active Substance: DEFERASIROX
     Indication: THALASSAEMIA
     Dosage: 1500 MG, QD
     Route: 048
     Dates: start: 20080101
  13. EXJADE [Suspect]
     Active Substance: DEFERASIROX
     Dosage: 2250 MG, QD
     Route: 048
  14. DILTIAZEM. [Concomitant]
     Active Substance: DILTIAZEM
     Indication: PRODUCT USED FOR UNKNOWN INDICATION
     Route: 065
  15. RISEDRONATE [Concomitant]
     Active Substance: RISEDRONATE SODIUM
     Indication: PRODUCT USED FOR UNKNOWN INDICATION
     Route: 065
  16. FOLIC ACID. [Concomitant]
     Active Substance: FOLIC ACID
     Indication: PRODUCT USED FOR UNKNOWN INDICATION
     Route: 065

REACTIONS (34)
  - Dyspnoea [Recovering/Resolving]
  - Haemolysis [Unknown]
  - Abdominal discomfort [Unknown]
  - Fungal infection [Unknown]
  - Contrast media allergy [Unknown]
  - Pyrexia [Unknown]
  - Blood creatinine increased [Unknown]
  - Rash erythematous [Unknown]
  - Oedema peripheral [Unknown]
  - Pulmonary embolism [Recovered/Resolved]
  - Abdominal distension [Unknown]
  - Asthenia [Unknown]
  - Pulmonary hypertension [Recovered/Resolved]
  - Lung disorder [Unknown]
  - Viral upper respiratory tract infection [Unknown]
  - Feeling abnormal [Unknown]
  - Drug intolerance [Unknown]
  - Pulmonary oedema [Unknown]
  - Sleep disorder [Unknown]
  - Serum ferritin increased [Unknown]
  - Influenza like illness [Unknown]
  - Headache [Unknown]
  - Haemoglobin increased [Unknown]
  - Pruritus [Unknown]
  - Localised oedema [Unknown]
  - Pollakiuria [Unknown]
  - Diarrhoea [Recovered/Resolved]
  - Oropharyngeal pain [Unknown]
  - Malaise [Unknown]
  - Dehydration [Unknown]
  - Thrombosis [Recovered/Resolved]
  - Asphyxia [Unknown]
  - Urticaria [Unknown]
  - Abdominal pain upper [Unknown]

NARRATIVE: CASE EVENT DATE: 2008
